FAERS Safety Report 14970012 (Version 1)
Quarter: 2018Q2

REPORT INFORMATION
  Report Type: Spontaneous
  Country: US (occurrence: US)
  Receive Date: 20180512
  Receipt Date: 20180512
  Transmission Date: 20180711
  Serious: Yes (Other)
  Sender: FDA-Public Use
  Company Number: None

PATIENT
  Age: 76 Year
  Sex: Male
  Weight: 77.85 kg

DRUGS (21)
  1. SENNA [Concomitant]
     Active Substance: SENNA LEAF\SENNOSIDES\SENNOSIDES A AND B
  2. VITAMIN D [Concomitant]
     Active Substance: CHOLECALCIFEROL
  3. CELLUVISC DROPS [Concomitant]
  4. QVAR [Concomitant]
     Active Substance: BECLOMETHASONE DIPROPIONATE
  5. NITRATE IRBESARTAN [Concomitant]
  6. LORATADINE. [Concomitant]
     Active Substance: LORATADINE
  7. METHYLPREDNISOLONE. [Concomitant]
     Active Substance: METHYLPREDNISOLONE
  8. BIPAP RAPAFLO (SILODOSIN) [Concomitant]
  9. WARFARIN [Concomitant]
     Active Substance: WARFARIN
  10. RANEXA [Concomitant]
     Active Substance: RANOLAZINE
  11. VITAMIN D3 [Concomitant]
     Active Substance: CHOLECALCIFEROL
  12. PRESERVATIVE-FREE REFRESH PLUS [Concomitant]
  13. AREDS 2 SUPPLEMENT [Concomitant]
  14. ASTELIN [Concomitant]
     Active Substance: AZELASTINE HYDROCHLORIDE
  15. LANSOPRAZOLE. [Concomitant]
     Active Substance: LANSOPRAZOLE
  16. MUCINEX [Concomitant]
     Active Substance: GUAIFENESIN
  17. ENSURE [Concomitant]
     Active Substance: AMINO ACIDS\DEXTROSE\ELECTROLYTES NOS\SOYBEAN OIL\VITAMINS
  18. QVAR REDIHALER [Suspect]
     Active Substance: BECLOMETHASONE DIPROPIONATE
     Indication: ASTHMA
     Dosage: 2 INHALATIONS TWICE A DAY ORAL?          ?
     Route: 048
     Dates: start: 20180509, end: 20180510
  19. TESSALON [Concomitant]
     Active Substance: BENZONATATE
  20. VERAPAMIL [Concomitant]
     Active Substance: VERAPAMIL HYDROCHLORIDE
  21. ATORVASTATIN [Concomitant]
     Active Substance: ATORVASTATIN

REACTIONS (3)
  - Chest discomfort [None]
  - Dyspnoea [None]
  - Bronchospasm [None]

NARRATIVE: CASE EVENT DATE: 20180511
